FAERS Safety Report 19941013 (Version 1)
Quarter: 2021Q4

REPORT INFORMATION
  Report Type: Spontaneous
  Country: US (occurrence: US)
  Receive Date: 20211011
  Receipt Date: 20211011
  Transmission Date: 20220303
  Serious: Yes (Death, Other)
  Sender: FDA-Public Use
  Company Number: US-GILEAD-2021-0551760

PATIENT
  Age: 60 Year
  Sex: Male

DRUGS (1)
  1. VEKLURY [Suspect]
     Active Substance: REMDESIVIR
     Indication: COVID-19 pneumonia
     Dosage: UNKNOWN
     Route: 065
     Dates: start: 20210820

REACTIONS (4)
  - Death [Fatal]
  - Intestinal perforation [Fatal]
  - Nausea [Fatal]
  - Ulcer [Fatal]

NARRATIVE: CASE EVENT DATE: 20210827
